FAERS Safety Report 16030526 (Version 1)
Quarter: 2019Q1

REPORT INFORMATION
  Report Type: Spontaneous
  Country: US (occurrence: US)
  Receive Date: 20190208
  Receipt Date: 20190208
  Transmission Date: 20190418
  Serious: No
  Sender: FDA-Public Use
  Company Number: None

PATIENT
  Age: 33 Year
  Sex: Male

DRUGS (1)
  1. EPCLUSA [Suspect]
     Active Substance: SOFOSBUVIR\VELPATASVIR
     Indication: HEPATITIS B
     Dates: start: 20190205, end: 20190208

REACTIONS (4)
  - Hypersensitivity [None]
  - Headache [None]
  - Ocular hyperaemia [None]
  - Anxiety [None]

NARRATIVE: CASE EVENT DATE: 20190208
